FAERS Safety Report 8778458 (Version 1)
Quarter: 2012Q4

REPORT INFORMATION
  Report Type: 
  Country: US (occurrence: US)
  Receive Date: 20120911
  Receipt Date: 20120911
  Transmission Date: 20130627
  Serious: Yes (Hospitalization)
  Sender: FDA-Public Use
  Company Number: US-BIOGENIDEC-2012BI035583

PATIENT
  Age: 60 Year
  Sex: Male

DRUGS (3)
  1. AVONEX [Suspect]
     Indication: MULTIPLE SCLEROSIS
     Route: 030
     Dates: start: 20010419
  2. AVONEX [Suspect]
     Indication: MULTIPLE SCLEROSIS
     Route: 030
     Dates: start: 20110124
  3. MEDICATION (NOS) [Concomitant]

REACTIONS (6)
  - Infection [Not Recovered/Not Resolved]
  - Poor peripheral circulation [Not Recovered/Not Resolved]
  - Memory impairment [Not Recovered/Not Resolved]
  - Distractibility [Not Recovered/Not Resolved]
  - Renal disorder [Recovered/Resolved]
  - Oedema peripheral [Not Recovered/Not Resolved]
